FAERS Safety Report 13674424 (Version 2)
Quarter: 2017Q3

REPORT INFORMATION
  Report Type: Spontaneous
  Country: GB (occurrence: GB)
  Receive Date: 20170621
  Receipt Date: 20170824
  Transmission Date: 20171127
  Serious: Yes (Death, Life-Threatening, Hospitalization, Other)
  Sender: FDA-Public Use
  Company Number: GB-ACCORD-052772

PATIENT
  Age: 65 Year
  Sex: Female
  Weight: 158 kg

DRUGS (10)
  1. SIMVASTATIN. [Interacting]
     Active Substance: SIMVASTATIN
     Indication: HYPERCHOLESTEROLAEMIA
     Route: 048
  2. BRICANYL [Concomitant]
     Active Substance: TERBUTALINE SULFATE
     Route: 055
  3. CLOPIDOGREL [Concomitant]
     Active Substance: CLOPIDOGREL BISULFATE
  4. AMLODIPINE [Concomitant]
     Active Substance: AMLODIPINE BESYLATE
  5. LANSOPRAZOLE. [Concomitant]
     Active Substance: LANSOPRAZOLE
  6. NORETHISTERONE [Concomitant]
     Active Substance: NORETHINDRONE
  7. FOSTAIR [Concomitant]
     Active Substance: BECLOMETHASONE\FORMOTEROL
     Route: 055
  8. MONTELUKAST [Concomitant]
     Active Substance: MONTELUKAST SODIUM
  9. ITRACONAZOLE. [Suspect]
     Active Substance: ITRACONAZOLE
     Indication: SEVERE ASTHMA WITH FUNGAL SENSITISATION
     Route: 048
     Dates: start: 20170427, end: 201705
  10. CODEINE PHOSPHATE/PARACETAMOL [Concomitant]

REACTIONS (8)
  - Rhabdomyolysis [Fatal]
  - Blood urine present [Unknown]
  - Dyspnoea [Unknown]
  - Tremor [Unknown]
  - Urosepsis [Fatal]
  - Acute kidney injury [Not Recovered/Not Resolved]
  - Flushing [Unknown]
  - Drug interaction [Unknown]

NARRATIVE: CASE EVENT DATE: 20170516
